FAERS Safety Report 20713521 (Version 1)
Quarter: 2022Q2

REPORT INFORMATION
  Report Type: Spontaneous
  Country: US (occurrence: None)
  Receive Date: 20220414
  Receipt Date: 20220414
  Transmission Date: 20220721
  Serious: Yes (Life-Threatening)
  Sender: FDA-Public Use
  Company Number: None

PATIENT
  Age: 0 Year
  Sex: Male
  Weight: 3.26 kg

DRUGS (2)
  1. PORACTANT ALFA [Suspect]
     Active Substance: PORACTANT ALFA
     Indication: Respiratory distress
     Dosage: OTHER FREQUENCY : ONE TIME DOSE;?
     Route: 007
     Dates: start: 20220411, end: 20220411
  2. PORACTANT ALFA [Suspect]
     Active Substance: PORACTANT ALFA
     Indication: Respiratory distress
     Dosage: OTHER FREQUENCY : ONE TIME DOSE;?
     Route: 007
     Dates: start: 20220411, end: 20220411

REACTIONS (3)
  - Adverse drug reaction [None]
  - Endotracheal intubation complication [None]
  - Product use issue [None]

NARRATIVE: CASE EVENT DATE: 20220411
